FAERS Safety Report 7651554-3 (Version None)
Quarter: 2011Q3

REPORT INFORMATION
  Report Type: 
  Country: None (occurrence: None)
  Receive Date: 20110802
  Receipt Date: 20110729
  Transmission Date: 20111222
  Serious: Yes (Death)
  Sender: FDA-Public Use
  Company Number: PHHY2011CA68413

PATIENT
  Sex: Male
  Weight: 64.5 kg

DRUGS (1)
  1. RIVASTIGMINE [Suspect]
     Dosage: PATCH 10
     Route: 062
     Dates: start: 20100215, end: 20110513

REACTIONS (1)
  - DEATH [None]
